FAERS Safety Report 13791867 (Version 1)
Quarter: 2017Q3

REPORT INFORMATION
  Report Type: Report from Study
  Country: US (occurrence: US)
  Receive Date: 20170725
  Receipt Date: 20170725
  Transmission Date: 20171127
  Serious: Yes (Hospitalization)
  Sender: FDA-Public Use
  Company Number: US-GILEAD-2017-0284526

PATIENT
  Age: 73 Year
  Sex: Male

DRUGS (1)
  1. IDELALISIB [Suspect]
     Active Substance: IDELALISIB
     Indication: NON-HODGKIN^S LYMPHOMA
     Dosage: 150 MG, BID
     Route: 048

REACTIONS (6)
  - Balance disorder [Unknown]
  - Fatigue [Unknown]
  - Blood potassium abnormal [Unknown]
  - Fall [Unknown]
  - Limb injury [Unknown]
  - Diarrhoea [Unknown]
